FAERS Safety Report 4691955-9 (Version None)
Quarter: 2005Q2

REPORT INFORMATION
  Report Type: 
  Country: None (occurrence: None)
  Receive Date: 20050614
  Receipt Date: 20050606
  Transmission Date: 20051028
  Serious: Yes (Other)
  Sender: FDA-Public Use
  Company Number: 214870

PATIENT
  Age: 54 Year
  Sex: Female

DRUGS (1)
  1. AVASTIN [Suspect]
     Indication: METASTATIC RENAL CELL CARCINOMA
     Dosage: 5 MG/KG,Q2W, INTRAVENOUS
     Route: 042
     Dates: start: 20050324

REACTIONS (2)
  - DISCOMFORT [None]
  - ORAL SOFT TISSUE DISORDER [None]
